FAERS Safety Report 9358350 (Version 1)
Quarter: 2013Q2

REPORT INFORMATION
  Report Type: Spontaneous
  Country: US (occurrence: None)
  Receive Date: 20130619
  Receipt Date: 20130619
  Transmission Date: 20140414
  Serious: Yes (Other)
  Sender: FDA-Public Use
  Company Number: None

PATIENT
  Age: 48 Year
  Sex: Female

DRUGS (1)
  1. MYFORTIC [Suspect]
     Route: 048
     Dates: start: 20100816, end: 20130529

REACTIONS (1)
  - Irritable bowel syndrome [None]
